FAERS Safety Report 25152973 (Version 6)
Quarter: 2025Q2

REPORT INFORMATION
  Report Type: Other
  Country: US (occurrence: US)
  Receive Date: 20250403
  Receipt Date: 20250618
  Transmission Date: 20250717
  Serious: Yes (Hospitalization, Other)
  Sender: INTERCEPT PHARMACEUTICALS
  Company Number: US-INTERCEPT-PM2025000670

PATIENT
  Sex: Female
  Weight: 107 kg

DRUGS (16)
  1. OCALIVA [Suspect]
     Active Substance: OBETICHOLIC ACID
     Indication: Primary biliary cholangitis
     Dosage: 5 MILLIGRAM, QD
     Route: 048
     Dates: start: 20240712, end: 20250317
  2. OCALIVA [Suspect]
     Active Substance: OBETICHOLIC ACID
     Dosage: 5 MILLIGRAM, QD
     Route: 048
     Dates: start: 20250325, end: 202504
  3. OCALIVA [Suspect]
     Active Substance: OBETICHOLIC ACID
     Dosage: 5 MILLIGRAM, QD
     Route: 048
     Dates: start: 2025, end: 2025
  4. OCALIVA [Suspect]
     Active Substance: OBETICHOLIC ACID
     Dosage: 5 MILLIGRAM, QD
     Route: 048
     Dates: start: 2025
  5. ACTIGALL [Concomitant]
     Active Substance: URSODIOL
     Dosage: 500 MILLIGRAM, BID
     Route: 048
  6. ACTIGALL [Concomitant]
     Active Substance: URSODIOL
     Dosage: 600 MILLIGRAM, BID
     Route: 048
  7. ASPIRIN [Concomitant]
     Active Substance: ASPIRIN
     Dosage: 81 MILLIGRAM, QD
     Route: 048
  8. ZOFRAN [Concomitant]
     Active Substance: ONDANSETRON HYDROCHLORIDE
  9. SENOKOT [Concomitant]
     Active Substance: SENNOSIDES
     Indication: Constipation
     Dosage: 17.2 MILLIGRAM, QD, PRN
     Route: 048
  10. VICTOZA [Concomitant]
     Active Substance: LIRAGLUTIDE
     Dosage: 1.8 MILLIGRAM, QD
     Route: 058
  11. PROGRAF [Concomitant]
     Active Substance: TACROLIMUS
     Dosage: 4 CAPSULES (4 MG) IN THE MORNING, 4 CAPSULES (4MG) BEFORE BEDTIME)
     Route: 048
  12. PROGRAF [Concomitant]
     Active Substance: TACROLIMUS
     Dosage: 4 CAPSULES (4 MG) IN THE MORNING, 3 CAPSULES (3MG) BEFORE BEDTIME)
     Route: 048
  13. EMGALITY [Concomitant]
     Active Substance: GALCANEZUMAB-GNLM
     Route: 058
  14. NIFEDIPINE [Concomitant]
     Active Substance: NIFEDIPINE
     Dosage: 30 MILLIGRAM, BID
     Route: 048
  15. DOCUSATE SODIUM [Concomitant]
     Active Substance: DOCUSATE SODIUM
  16. METRONIDAZOLE [Concomitant]
     Active Substance: METRONIDAZOLE

REACTIONS (13)
  - Colitis ischaemic [Recovered/Resolved]
  - Pulmonary fibrosis [Not Recovered/Not Resolved]
  - Atelectasis [Not Recovered/Not Resolved]
  - Pleural effusion [Unknown]
  - Hypertension [Unknown]
  - Insomnia [Not Recovered/Not Resolved]
  - Depressed mood [Not Recovered/Not Resolved]
  - Upper respiratory tract infection [Not Recovered/Not Resolved]
  - Pruritus [Not Recovered/Not Resolved]
  - Drug ineffective [Unknown]
  - Therapy interrupted [Recovered/Resolved]
  - Product distribution issue [Not Recovered/Not Resolved]
  - Intentional dose omission [Recovered/Resolved]

NARRATIVE: CASE EVENT DATE: 20250101
